FAERS Safety Report 5269657-X (Version None)
Quarter: 2007Q1

REPORT INFORMATION
  Report Type: 
  Country: None (occurrence: None)
  Receive Date: 20070320
  Receipt Date: 20070306
  Transmission Date: 20070707
  Serious: Yes (Other)
  Sender: FDA-Public Use
  Company Number: PT-PFIZER INC-2007018739

PATIENT
  Sex: Male

DRUGS (1)
  1. REVATIO [Suspect]
     Dosage: DAILY DOSE:5MG
     Route: 048

REACTIONS (1)
  - HYPOTENSION [None]
